FAERS Safety Report 25378607 (Version 2)
Quarter: 2025Q2

REPORT INFORMATION
  Report Type: Spontaneous
  Country: US (occurrence: US)
  Receive Date: 20250530
  Receipt Date: 20250609
  Transmission Date: 20250716
  Serious: No
  Sender: BAUSCH AND LOMB
  Company Number: US-BAUSCHBL-2025BNL009178

PATIENT
  Sex: Female
  Weight: 61.23 kg

DRUGS (3)
  1. LUMIFY [Suspect]
     Active Substance: BRIMONIDINE TARTRATE
     Indication: Ocular hyperaemia
     Dosage: USED IT AT LEAST 10 TIMES PER DAY FOR MONTHS?1 DROP IN EACH EYE EVERY 2 HOURS FOR REDNESS
     Route: 047
     Dates: start: 202411, end: 20250511
  2. LUMIFY [Suspect]
     Active Substance: BRIMONIDINE TARTRATE
  3. PREDNISONE [Concomitant]
     Active Substance: PREDNISONE
     Indication: Product used for unknown indication

REACTIONS (12)
  - Nausea [Recovered/Resolved]
  - Somnolence [Recovered/Resolved]
  - Ocular hyperaemia [Recovered/Resolved]
  - Fatigue [Recovered/Resolved]
  - Eye inflammation [Recovered/Resolved]
  - Vision blurred [Recovered/Resolved]
  - Illness [Recovered/Resolved]
  - Abdominal discomfort [Recovered/Resolved]
  - Ocular rosacea [Recovered/Resolved]
  - Therapeutic product effect incomplete [Unknown]
  - Inappropriate schedule of product administration [Unknown]
  - Product use complaint [Unknown]

NARRATIVE: CASE EVENT DATE: 20250101
